FAERS Safety Report 18696730 (Version 2)
Quarter: 2021Q1

REPORT INFORMATION
  Report Type: Spontaneous
  Country: US (occurrence: US)
  Receive Date: 20210104
  Receipt Date: 20210105
  Transmission Date: 20210419
  Serious: Yes (Hospitalization, Congenital Anomaly, Other)
  Sender: FDA-Public Use
  Company Number: US-ALLERGAN-2050425US

PATIENT
  Sex: Female
  Weight: 1.19 kg

DRUGS (5)
  1. BETAMETHASONE. [Suspect]
     Active Substance: BETAMETHASONE
     Indication: PREGNANCY
     Route: 064
  2. ASPIRIN. [Suspect]
     Active Substance: ASPIRIN
     Indication: PREGNANCY
     Route: 064
  3. ACETAMINOPHEN. [Suspect]
     Active Substance: ACETAMINOPHEN
     Indication: PREGNANCY
     Route: 064
  4. IBUPROFEN. [Suspect]
     Active Substance: IBUPROFEN
     Indication: PREGNANCY
     Route: 064
  5. CITALOPRAM HYDROBROMIDE ? BP [Suspect]
     Active Substance: CITALOPRAM HYDROBROMIDE
     Indication: PREGNANCY
     Route: 064

REACTIONS (6)
  - Foetal growth restriction [Unknown]
  - Premature baby [Unknown]
  - Right ventricular dysfunction [Recovering/Resolving]
  - Ductus arteriosus premature closure [Unknown]
  - Pulmonary hypertension [Recovering/Resolving]
  - Pregnancy [Unknown]
